FAERS Safety Report 18300929 (Version 8)
Quarter: 2025Q1

REPORT INFORMATION
  Report Type: Report from Study
  Country: US (occurrence: US)
  Receive Date: 20200923
  Receipt Date: 20250107
  Transmission Date: 20250409
  Serious: Yes (Disabling, Other)
  Sender: INCYTE
  Company Number: US-INCYTE CORPORATION-2020IN009102

PATIENT

DRUGS (43)
  1. JAKAFI [Suspect]
     Active Substance: RUXOLITINIB
     Indication: Myelofibrosis
     Dosage: 10 MILLIGRAM, BID
     Route: 048
     Dates: start: 20181120
  2. JAKAFI [Suspect]
     Active Substance: RUXOLITINIB
     Dosage: 15 MILLIGRAM, BID
     Route: 048
  3. JAKAFI [Suspect]
     Active Substance: RUXOLITINIB
     Route: 048
  4. JAKAFI [Suspect]
     Active Substance: RUXOLITINIB
     Route: 048
  5. JAKAFI [Suspect]
     Active Substance: RUXOLITINIB
     Route: 048
  6. JAKAFI [Suspect]
     Active Substance: RUXOLITINIB
     Route: 048
  7. JAKAFI [Suspect]
     Active Substance: RUXOLITINIB
     Dosage: 10 MILLIGRAM, BID
     Route: 048
  8. PLAVIX [Concomitant]
     Active Substance: CLOPIDOGREL BISULFATE
     Indication: Product used for unknown indication
     Route: 065
  9. KLONOPIN [Concomitant]
     Active Substance: CLONAZEPAM
     Indication: Product used for unknown indication
     Route: 065
  10. ZOLOFT [Concomitant]
     Active Substance: SERTRALINE HYDROCHLORIDE
     Indication: Product used for unknown indication
     Route: 065
  11. CANDESARTAN [Concomitant]
     Active Substance: CANDESARTAN
     Indication: Product used for unknown indication
     Route: 065
  12. BUSPAR [Concomitant]
     Active Substance: BUSPIRONE HYDROCHLORIDE
     Indication: Product used for unknown indication
     Route: 065
  13. ABILIFY [Concomitant]
     Active Substance: ARIPIPRAZOLE
     Indication: Product used for unknown indication
     Route: 065
  14. ZOFRAN [Concomitant]
     Active Substance: ONDANSETRON HYDROCHLORIDE
     Indication: Product used for unknown indication
     Route: 065
  15. PHRENILIN [Concomitant]
     Active Substance: ACETAMINOPHEN\BUTALBITAL
     Indication: Product used for unknown indication
     Route: 065
  16. RELPAX [Concomitant]
     Active Substance: ELETRIPTAN HYDROBROMIDE
     Indication: Product used for unknown indication
     Route: 065
  17. MECLIZINE [Concomitant]
     Active Substance: MECLIZINE HYDROCHLORIDE
     Indication: Product used for unknown indication
     Route: 065
  18. PREDNISONE [Concomitant]
     Active Substance: PREDNISONE
     Indication: Product used for unknown indication
     Route: 065
  19. NUEDEXTA [Concomitant]
     Active Substance: DEXTROMETHORPHAN HYDROBROMIDE\QUINIDINE SULFATE
     Indication: Product used for unknown indication
     Route: 065
  20. EMGALITY [Concomitant]
     Active Substance: GALCANEZUMAB-GNLM
     Indication: Migraine
     Route: 065
  21. PARAFON FORTE [Concomitant]
     Active Substance: CHLORZOXAZONE
     Indication: Product used for unknown indication
     Route: 065
  22. ATARAX [Concomitant]
     Active Substance: HYDROXYZINE HYDROCHLORIDE
     Indication: Product used for unknown indication
     Route: 065
  23. ALLERGY [DIPHENHYDRAMINE HYDROCHLORIDE] [Concomitant]
     Indication: Product used for unknown indication
     Route: 065
  24. SUDAFED [Concomitant]
     Active Substance: PSEUDOEPHEDRINE HYDROCHLORIDE
     Indication: Product used for unknown indication
     Route: 065
  25. ADVIL [Concomitant]
     Active Substance: IBUPROFEN
     Indication: Product used for unknown indication
     Route: 065
  26. VITAMIN D NOS [Concomitant]
     Active Substance: CHOLECALCIFEROL\ERGOCALCIFEROL
     Indication: Product used for unknown indication
     Route: 065
  27. TUMS [Concomitant]
     Active Substance: CALCIUM CARBONATE
     Indication: Product used for unknown indication
     Route: 065
  28. TETRAHYDROZOLINE HYDROCHLORIDE [Concomitant]
     Active Substance: TETRAHYDROZOLINE HYDROCHLORIDE
     Indication: Dry eye
     Route: 065
  29. BIOTIN [Concomitant]
     Active Substance: BIOTIN
     Indication: Product used for unknown indication
     Route: 065
  30. ZINC [Concomitant]
     Active Substance: ZINC
     Indication: Product used for unknown indication
     Route: 065
  31. CALCIUM [Concomitant]
     Active Substance: CALCIUM
     Indication: Product used for unknown indication
     Route: 065
  32. VITAMIN C [Concomitant]
     Active Substance: ASCORBIC ACID
     Indication: Product used for unknown indication
     Route: 065
  33. FISH OIL [Concomitant]
     Active Substance: FISH OIL
     Indication: Product used for unknown indication
     Route: 065
  34. .ALPHA.-TOCOPHEROL [Concomitant]
     Active Substance: .ALPHA.-TOCOPHEROL
     Indication: Product used for unknown indication
     Route: 065
  35. ZYRTEC [Concomitant]
     Active Substance: CETIRIZINE HYDROCHLORIDE
     Indication: Product used for unknown indication
     Route: 065
  36. ALEVE [Concomitant]
     Active Substance: NAPROXEN SODIUM
     Indication: Product used for unknown indication
     Route: 065
  37. BISACODYL [Concomitant]
     Active Substance: BISACODYL
     Indication: Product used for unknown indication
     Route: 065
  38. NURTEC ODT [Concomitant]
     Active Substance: RIMEGEPANT SULFATE
     Indication: Product used for unknown indication
     Route: 065
  39. NALTREXONE HYDROCHLORIDE [Concomitant]
     Active Substance: NALTREXONE HYDROCHLORIDE
     Indication: Product used for unknown indication
     Route: 065
  40. NEURONTIN [Concomitant]
     Active Substance: GABAPENTIN
     Indication: Product used for unknown indication
     Route: 065
  41. ACETAMINOPHEN\BUTALBITAL\CAFFEINE\CODEINE PHOSPHATE [Concomitant]
     Active Substance: ACETAMINOPHEN\BUTALBITAL\CAFFEINE\CODEINE PHOSPHATE
     Indication: Product used for unknown indication
     Route: 065
  42. BUSPIRONE HCL [Concomitant]
     Active Substance: BUSPIRONE HYDROCHLORIDE
     Indication: Product used for unknown indication
     Route: 065
  43. FLUTICASONE PROPIONATE [Concomitant]
     Active Substance: FLUTICASONE PROPIONATE
     Indication: Product used for unknown indication
     Route: 065

REACTIONS (29)
  - Skin cancer [Unknown]
  - Brain injury [Unknown]
  - Loss of consciousness [Unknown]
  - Transient ischaemic attack [Unknown]
  - Head injury [Not Recovered/Not Resolved]
  - Haematemesis [Unknown]
  - Concussion [Unknown]
  - Nervous system disorder [Unknown]
  - Neck injury [Unknown]
  - Weight loss poor [Unknown]
  - Migraine [Unknown]
  - Malaise [Not Recovered/Not Resolved]
  - Hypersensitivity [Not Recovered/Not Resolved]
  - Hot flush [Not Recovered/Not Resolved]
  - Osteoporosis [Unknown]
  - Rib fracture [Unknown]
  - Sneezing [Unknown]
  - Blood magnesium decreased [Unknown]
  - Myalgia [Unknown]
  - Paraesthesia [Unknown]
  - Asthenia [Unknown]
  - Pain in extremity [Unknown]
  - Blood disorder [Unknown]
  - Dizziness [Not Recovered/Not Resolved]
  - Fatigue [Unknown]
  - Weight increased [Unknown]
  - Vertigo [Unknown]
  - Headache [Not Recovered/Not Resolved]
  - Constipation [Unknown]

NARRATIVE: CASE EVENT DATE: 20200801
